FAERS Safety Report 4855819-X (Version None)
Quarter: 2005Q4

REPORT INFORMATION
  Report Type: 
  Country: None (occurrence: None)
  Receive Date: 20051216
  Receipt Date: 20051130
  Transmission Date: 20060501
  Serious: Yes (Hospitalization)
  Sender: FDA-Public Use
  Company Number: JP-MERCK-0512USA00431

PATIENT
  Age: 87 Year
  Sex: Female

DRUGS (2)
  1. PEPCID RPD [Suspect]
     Route: 048
  2. BLOPRESS [Concomitant]
     Route: 048

REACTIONS (2)
  - HEPATITIS ACUTE [None]
  - PLATELET COUNT DECREASED [None]
